FAERS Safety Report 12294233 (Version 2)
Quarter: 2016Q2

REPORT INFORMATION
  Report Type: Report from Study
  Country: US (occurrence: US)
  Receive Date: 20160422
  Receipt Date: 20160613
  Transmission Date: 20160815
  Serious: No
  Sender: FDA-Public Use
  Company Number: US-AMGEN-USASL2016047760

PATIENT
  Age: 42 Year
  Sex: Female

DRUGS (1)
  1. ENBREL [Suspect]
     Active Substance: ETANERCEPT
     Indication: RHEUMATOID ARTHRITIS
     Dosage: 50 MG, UNK
     Route: 065
     Dates: start: 20160301

REACTIONS (12)
  - Tonsillitis [Unknown]
  - Injection site reaction [Unknown]
  - Fatigue [Unknown]
  - Chest discomfort [Unknown]
  - Rash [Unknown]
  - Night sweats [Unknown]
  - Eczema [Unknown]
  - Dysgeusia [Unknown]
  - Injection site erythema [Unknown]
  - Sleep terror [Unknown]
  - Fluid retention [Unknown]
  - Rosacea [Unknown]

NARRATIVE: CASE EVENT DATE: 2016
